FAERS Safety Report 22082758 (Version 1)
Quarter: 2023Q1

REPORT INFORMATION
  Report Type: Spontaneous
  Country: US (occurrence: US)
  Receive Date: 20230310
  Receipt Date: 20230310
  Transmission Date: 20230418
  Serious: No
  Sender: FDA-Public Use
  Company Number: US-MYOVANT SCIENCES GMBH-2022MYSCI1000352

PATIENT
  Age: 72 Year
  Sex: Male

DRUGS (5)
  1. ORGOVYX [Suspect]
     Active Substance: RELUGOLIX
     Indication: Prostate cancer
     Dosage: 360 MILLIGRAM, ONE TIME DOSE
     Route: 048
     Dates: start: 202208, end: 202208
  2. ORGOVYX [Suspect]
     Active Substance: RELUGOLIX
     Dosage: 240 MILLIGRAM, ONE TIME DOSE
     Route: 048
     Dates: start: 202208, end: 202208
  3. ORGOVYX [Suspect]
     Active Substance: RELUGOLIX
     Dosage: 120 MILLIGRAM, QD
     Route: 048
     Dates: start: 202208
  4. VITAMIN C [Concomitant]
     Active Substance: ASCORBIC ACID
     Indication: Mineral supplementation
     Dosage: 650 MILLIGRAM, BID
     Route: 065
     Dates: start: 2000
  5. VITAMIN D                          /00107901/ [Concomitant]
     Indication: Mineral supplementation
     Dosage: 1000 MILLIGRAM, BID
     Route: 065
     Dates: start: 2000

REACTIONS (2)
  - Therapy interrupted [Unknown]
  - Incorrect dosage administered [Recovered/Resolved]

NARRATIVE: CASE EVENT DATE: 20220801
